FAERS Safety Report 4428571-X (Version None)
Quarter: 2004Q3

REPORT INFORMATION
  Report Type: 
  Country: None (occurrence: None)
  Receive Date: 20040818
  Receipt Date: 20040816
  Transmission Date: 20050211
  Serious: Yes (Hospitalization)
  Sender: FDA-Public Use
  Company Number: FR-BRISTOL-MYERS SQUIBB COMPANY-12672762

PATIENT
  Age: 78 Year
  Sex: Male
  Weight: 50 kg

DRUGS (3)
  1. TAXOL [Suspect]
     Indication: LUNG NEOPLASM
     Route: 042
     Dates: start: 20040318, end: 20040318
  2. VEPESIDE-SANDOZ [Suspect]
     Indication: LUNG NEOPLASM
     Route: 042
     Dates: start: 20040416, end: 20040416
  3. CARBOPLATIN [Suspect]
     Indication: LUNG NEOPLASM
     Route: 042
     Dates: start: 20040416, end: 20040416

REACTIONS (2)
  - ILIAC ARTERY THROMBOSIS [None]
  - PERIPHERAL ISCHAEMIA [None]
